FAERS Safety Report 4755156-8 (Version None)
Quarter: 2005Q3

REPORT INFORMATION
  Report Type: 
  Country: None (occurrence: None)
  Receive Date: 20050829
  Receipt Date: 20050818
  Transmission Date: 20060218
  Serious: Yes (Other)
  Sender: FDA-Public Use
  Company Number: US-JNJFOC-20050804481

PATIENT
  Sex: Female
  Weight: 56.7 kg

DRUGS (9)
  1. REMICADE [Suspect]
     Indication: RHEUMATOID ARTHRITIS
     Route: 042
  2. PLAQUENIL [Suspect]
     Indication: RHEUMATOID ARTHRITIS
  3. ESTRADIOL [Concomitant]
     Indication: HORMONE REPLACEMENT THERAPY
  4. NORVASC [Concomitant]
  5. TOPROL-XL [Concomitant]
  6. HYDROCHLOROPHIAZIDE [Concomitant]
  7. CITALOPRAM [Concomitant]
     Indication: DEPRESSION
  8. FLOGASET [Concomitant]
  9. FLOGASET [Concomitant]

REACTIONS (6)
  - BURNING SENSATION [None]
  - COUGH [None]
  - CUTANEOUS LUPUS ERYTHEMATOSUS [None]
  - FATIGUE [None]
  - TREMOR [None]
  - URTICARIA [None]
